FAERS Safety Report 18948777 (Version 1)
Quarter: 2021Q1

REPORT INFORMATION
  Report Type: Spontaneous
  Country: AT (occurrence: AT)
  Receive Date: 20210227
  Receipt Date: 20210227
  Transmission Date: 20210420
  Serious: Yes (Death, Life-Threatening, Other)
  Sender: FDA-Public Use
  Company Number: AT-AMGEN-AUTSP2021030354

PATIENT

DRUGS (3)
  1. TALIMOGENE LAHERPAREPVEC [Suspect]
     Active Substance: TALIMOGENE LAHERPAREPVEC
     Dosage: 108 PFU/ML, Q2WK (UP TO 4 ML BASED ON THE LESION SIZE)
     Route: 036
  2. TALIMOGENE LAHERPAREPVEC [Suspect]
     Active Substance: TALIMOGENE LAHERPAREPVEC
     Indication: METASTATIC MALIGNANT MELANOMA
     Dosage: 106 PFU/ML (ON DAY 1, UP TO 4 ML BASED ON THE LESION SIZE)
     Route: 036
  3. TALIMOGENE LAHERPAREPVEC [Suspect]
     Active Substance: TALIMOGENE LAHERPAREPVEC
     Dosage: 108 PFU/ML (ON DAY 21, UP TO 4 ML BASED ON THE LESION SIZE)
     Route: 036

REACTIONS (18)
  - Cardiac disorder [Unknown]
  - Metastatic malignant melanoma [Unknown]
  - Injection site reaction [Unknown]
  - Herpes virus infection [Unknown]
  - Injection site pain [Unknown]
  - Fatigue [Unknown]
  - Therapeutic product effect incomplete [Unknown]
  - Nausea [Unknown]
  - Chills [Unknown]
  - Injection site cellulitis [Unknown]
  - Pyrexia [Unknown]
  - Adverse event [Unknown]
  - Off label use [Unknown]
  - Oral herpes [Unknown]
  - Death [Fatal]
  - Colitis [Unknown]
  - Gastrointestinal disorder [Unknown]
  - Arthralgia [Unknown]
